FAERS Safety Report 7403098-1 (Version None)
Quarter: 2011Q2

REPORT INFORMATION
  Report Type: 
  Country: None (occurrence: None)
  Receive Date: 20110408
  Receipt Date: 20110321
  Transmission Date: 20111010
  Serious: No
  Sender: FDA-Public Use
  Company Number: US-NOVEN-11US002042

PATIENT
  Sex: Male

DRUGS (1)
  1. FENTANYL [Suspect]
     Indication: PRODUCT USED FOR UNKNOWN INDICATION
     Dosage: 0.5 IN X 0.5 IN OF 100 UG PATCH, FOR 0.5 HOURS
     Route: 062
     Dates: start: 20110319, end: 20110319

REACTIONS (2)
  - DRUG DIVERSION [None]
  - INTENTIONAL DRUG MISUSE [None]
